FAERS Safety Report 21384354 (Version 1)
Quarter: 2022Q3

REPORT INFORMATION
  Report Type: Spontaneous
  Country: FR (occurrence: FR)
  Receive Date: 20220928
  Receipt Date: 20220928
  Transmission Date: 20221026
  Serious: Yes (Hospitalization, Other)
  Sender: FDA-Public Use
  Company Number: FR-AFSSAPS-CN20221800

PATIENT
  Age: 80 Year
  Sex: Female
  Weight: 63 kg

DRUGS (11)
  1. ZOPICLONE [Suspect]
     Active Substance: ZOPICLONE
     Indication: Insomnia
     Dosage: 3.75 MILLIGRAM, ONCE A DAY
     Route: 065
     Dates: start: 20210201, end: 20220901
  2. ALPRAZOLAM [Suspect]
     Active Substance: ALPRAZOLAM
     Indication: Anxiety
     Dosage: 1 MILLIGRAM, ONCE A DAY
     Route: 065
     Dates: start: 20220816, end: 20220901
  3. SKENAN [Suspect]
     Active Substance: MORPHINE SULFATE
     Indication: Pain
     Dosage: 10 MILLIGRAM
     Route: 065
     Dates: start: 20220401, end: 20220901
  4. LYRICA [Suspect]
     Active Substance: PREGABALIN
     Indication: Pain
     Dosage: 300 MILLIGRAM, ONCE A DAY
     Route: 048
     Dates: start: 20210201
  5. FENTANYL [Suspect]
     Active Substance: FENTANYL
     Indication: Pain
     Dosage: 25 MICROGRAM
     Route: 065
     Dates: start: 20220906, end: 20220909
  6. FENTANYL [Suspect]
     Active Substance: FENTANYL
     Dosage: 50 MICROGRAM
     Route: 065
     Dates: start: 20210201, end: 20220301
  7. FENTANYL [Suspect]
     Active Substance: FENTANYL
     Dosage: 75 MICROGRAM
     Route: 065
     Dates: start: 20220301, end: 20220903
  8. LEVOTHYROXINE SODIUM [Concomitant]
     Active Substance: LEVOTHYROXINE SODIUM
     Indication: Hypothyroidism
     Dosage: 125 MICROGRAM, ONCE A DAY
     Route: 048
     Dates: start: 20220907
  9. LEVOTHYROXINE SODIUM [Concomitant]
     Active Substance: LEVOTHYROXINE SODIUM
     Dosage: 125 MICROGRAM, ONCE A DAY
     Route: 048
     Dates: start: 20210201, end: 20220901
  10. VALACYCLOVIR HYDROCHLORIDE [Concomitant]
     Active Substance: VALACYCLOVIR HYDROCHLORIDE
     Indication: Antiviral prophylaxis
     Dosage: 500 MILLIGRAM
     Route: 048
     Dates: start: 20210201
  11. SERTRALINE [Concomitant]
     Active Substance: SERTRALINE HYDROCHLORIDE
     Indication: Depression
     Dosage: 50 MILLIGRAM, ONCE A DAY
     Route: 065
     Dates: start: 20220816, end: 20220901

REACTIONS (2)
  - Depressed level of consciousness [Recovering/Resolving]
  - Confusional state [Recovering/Resolving]

NARRATIVE: CASE EVENT DATE: 20220831
